FAERS Safety Report 18523600 (Version 1)
Quarter: 2020Q4

REPORT INFORMATION
  Report Type: Other
  Country: US (occurrence: US)
  Receive Date: 20201119
  Receipt Date: 20201119
  Transmission Date: 20210114
  Serious: Yes (Hospitalization)
  Sender: FDA-Public Use
  Company Number: US-ROCHE-2714976

PATIENT
  Age: 58 Year
  Sex: Male

DRUGS (2)
  1. ACTILYSE [Suspect]
     Active Substance: ALTEPLASE
     Indication: ARTERIAL BYPASS THROMBOSIS
     Route: 042
  2. HEPARIN [Concomitant]
     Active Substance: HEPARIN SODIUM
     Indication: PRODUCT USED FOR UNKNOWN INDICATION
     Dosage: INFUSED THROUGH THE SIDE PORT OF THE SHEATH AT 500 UNITS/HOUR
     Route: 050

REACTIONS (2)
  - Compartment syndrome [Recovered/Resolved]
  - Haematoma [Recovering/Resolving]
